FAERS Safety Report 9787784 (Version 1)
Quarter: 2013Q4

REPORT INFORMATION
  Report Type: Spontaneous
  Country: US (occurrence: US)
  Receive Date: 20131230
  Receipt Date: 20131230
  Transmission Date: 20140711
  Serious: No
  Sender: FDA-Public Use
  Company Number: US-PFIZER INC-2013372485

PATIENT
  Age: 61 Year
  Sex: Female
  Weight: 131 kg

DRUGS (3)
  1. LYRICA [Suspect]
     Indication: NEURALGIA
     Dosage: UNK
     Dates: start: 201304, end: 201311
  2. EFEXOR XR [Concomitant]
     Indication: DEPRESSION
     Dosage: 150 MG, 2X/DAY
  3. RITALIN [Concomitant]
     Indication: ATTENTION DEFICIT/HYPERACTIVITY DISORDER
     Dosage: UNK

REACTIONS (1)
  - Drug ineffective [Unknown]
